FAERS Safety Report 8209166-9 (Version None)
Quarter: 2012Q1

REPORT INFORMATION
  Report Type: 
  Country: None (occurrence: None)
  Receive Date: 20120314
  Receipt Date: 20120307
  Transmission Date: 20120608
  Serious: Yes (Hospitalization)
  Sender: FDA-Public Use
  Company Number: AZ-BAYER-2012-022180

PATIENT
  Age: 57 Year
  Sex: Female

DRUGS (1)
  1. ASPIRIN [Suspect]
     Indication: CARDIOVASCULAR EVENT PROPHYLAXIS
     Dosage: 100 MG, QD
     Route: 048
     Dates: start: 20120224, end: 20120303

REACTIONS (3)
  - METRORRHAGIA [None]
  - ENDOMETRIAL HYPERPLASIA [None]
  - ENDOMETRIAL HYPERTROPHY [None]
